FAERS Safety Report 21964277 (Version 1)
Quarter: 2023Q1

REPORT INFORMATION
  Report Type: Spontaneous
  Country: FR (occurrence: FR)
  Receive Date: 20230207
  Receipt Date: 20230207
  Transmission Date: 20230417
  Serious: Yes (Life-Threatening, Hospitalization, Other)
  Sender: FDA-Public Use
  Company Number: FR-AFSSAPS-SE20221277

PATIENT
  Age: 64 Year
  Sex: Male
  Weight: 90 kg

DRUGS (20)
  1. TRANEXAMIC ACID [Suspect]
     Active Substance: TRANEXAMIC ACID
     Indication: General anaesthesia
     Dosage: 1 DOSAGE FORM TOTAL
     Route: 042
     Dates: start: 20181206, end: 20181206
  2. PERFALGAN [Concomitant]
     Active Substance: ACETAMINOPHEN
     Indication: General anaesthesia
     Dosage: 1 DOSAGE FORM ONE TOTAL
     Route: 042
     Dates: start: 20181206, end: 20181206
  3. TRAMADOL HYDROCHLORIDE [Concomitant]
     Active Substance: TRAMADOL HYDROCHLORIDE
     Indication: General anaesthesia
     Dosage: 1 DOSAGE FORM TOTAL
     Route: 042
     Dates: start: 20181206, end: 20181206
  4. KETOPROFEN [Concomitant]
     Active Substance: KETOPROFEN
     Indication: General anaesthesia
     Dosage: 1 DOSAGE FORM, TOTAL
     Route: 042
     Dates: start: 20181206, end: 20181206
  5. XARELTO [Concomitant]
     Active Substance: RIVAROXABAN
     Dosage: UNK
     Route: 065
  6. SOTALOL [Concomitant]
     Active Substance: SOTALOL
     Indication: Hypertension
     Dosage: UNK
     Route: 065
  7. JANUMET [Concomitant]
     Active Substance: METFORMIN HYDROCHLORIDE\SITAGLIPTIN PHOSPHATE
     Indication: Diabetes mellitus
     Dosage: UNK
     Route: 065
  8. PANTOPRAZOLE [Concomitant]
     Active Substance: PANTOPRAZOLE
     Indication: General anaesthesia
     Dosage: 1 DOSAGE FORM TOTAL
     Route: 042
     Dates: start: 20181206, end: 20181206
  9. INSULIN NOS [Concomitant]
     Active Substance: INSULIN NOS
     Indication: Diabetes mellitus
     Dosage: UNK
     Route: 065
  10. KETAMINE [Concomitant]
     Active Substance: KETAMINE
     Indication: General anaesthesia
     Dosage: 1 DOSAGE FORM TOTAL
     Route: 042
     Dates: start: 20181206, end: 20181206
  11. ROPIVACAINE HYDROCHLORIDE [Concomitant]
     Active Substance: ROPIVACAINE HYDROCHLORIDE
     Indication: General anaesthesia
     Dosage: 1 DOSAGE FORM TOTAL
     Route: 042
     Dates: start: 20181206, end: 20181206
  12. ACUPAN [Concomitant]
     Active Substance: NEFOPAM HYDROCHLORIDE
     Indication: General anaesthesia
     Dosage: 1 DOSAGE FORM TOTAL
     Route: 042
     Dates: start: 20181206, end: 20181206
  13. CEFAZOLIN SODIUM [Concomitant]
     Active Substance: CEFAZOLIN SODIUM
     Indication: General anaesthesia
     Dosage: 1 DOSAGE FORM TOTAL
     Route: 042
     Dates: start: 20181206, end: 20181206
  14. FUROSEMIDE [Concomitant]
     Active Substance: FUROSEMIDE
     Indication: Hypertension
     Dosage: UNK
     Route: 065
  15. CHOLECALCIFEROL [Concomitant]
     Active Substance: CHOLECALCIFEROL
     Dosage: UNK
     Route: 065
  16. AMLODIPINE [Concomitant]
     Active Substance: AMLODIPINE BESYLATE
     Indication: Hypertension
     Dosage: UNK
     Route: 065
  17. SUFENTANIL [Concomitant]
     Active Substance: SUFENTANIL
     Indication: General anaesthesia
     Dosage: 1 DOSAGE FORM TOTAL
     Route: 042
     Dates: start: 20181206, end: 20181206
  18. ACETAMINOPHEN\CODEINE PHOSPHATE [Concomitant]
     Active Substance: ACETAMINOPHEN\CODEINE PHOSPHATE
     Dosage: UNK
     Route: 065
  19. SIMVASTATIN [Concomitant]
     Active Substance: SIMVASTATIN
     Indication: Dyslipidaemia
     Dosage: UNK
     Route: 065
  20. DIPRIVAN [Concomitant]
     Active Substance: PROPOFOL
     Indication: General anaesthesia
     Dosage: 1 DOSAGE FORM TOTAL
     Route: 042
     Dates: start: 20181206, end: 20181206

REACTIONS (3)
  - Toxic skin eruption [Recovered/Resolved]
  - Hypersensitivity [Recovered/Resolved]
  - Allergy test positive [Recovered/Resolved]
